FAERS Safety Report 9491210 (Version 3)
Quarter: 2013Q4

REPORT INFORMATION
  Report Type: Report from Study
  Country: BR (occurrence: BR)
  Receive Date: 20130830
  Receipt Date: 20131028
  Transmission Date: 20140711
  Serious: Yes (Other)
  Sender: FDA-Public Use
  Company Number: BR-ROCHE-1265640

PATIENT
  Sex: Female
  Weight: 57 kg

DRUGS (8)
  1. ACTEMRA [Suspect]
     Indication: RHEUMATOID ARTHRITIS
     Route: 065
     Dates: start: 20120124, end: 20130708
  2. RIVOTRIL [Concomitant]
     Indication: PRODUCT USED FOR UNKNOWN INDICATION
     Route: 065
  3. DEFLAZACORT [Concomitant]
  4. SOMALGEN [Concomitant]
  5. FLUVASTATIN [Concomitant]
  6. LEVOTHYROXINE [Concomitant]
  7. SULFASALAZINE [Concomitant]
  8. OMEPRAZOLE [Concomitant]

REACTIONS (2)
  - Benign neoplasm of skin [Recovered/Resolved]
  - Therapeutic response decreased [Unknown]
